FAERS Safety Report 4332591-3 (Version None)
Quarter: 2004Q2

REPORT INFORMATION
  Report Type: 
  Country: None (occurrence: None)
  Receive Date: 20040401
  Receipt Date: 20040318
  Transmission Date: 20050107
  Serious: Yes (Other)
  Sender: FDA-Public Use
  Company Number: 2003151788ES

PATIENT
  Age: 60 Year
  Sex: Male

DRUGS (5)
  1. ALDACTONE [Suspect]
     Indication: HYPERTENSION
     Dosage: 150 MG DAILY ORAL
     Route: 048
     Dates: start: 20001219, end: 20010801
  2. ALDACTONE [Suspect]
     Indication: HYPERTENSION
     Dosage: 150 MG DAILY ORAL
     Route: 048
     Dates: start: 20020901
  3. ATENOLOL [Concomitant]
  4. ENALAPRIL MALEATE [Concomitant]
  5. PRAZOSIN HCL [Concomitant]

REACTIONS (2)
  - GYNAECOMASTIA [None]
  - RHINORRHOEA [None]
